FAERS Safety Report 5294704-9 (Version None)
Quarter: 2007Q2

REPORT INFORMATION
  Report Type: 
  Country: None (occurrence: None)
  Receive Date: 20070412
  Receipt Date: 20070328
  Transmission Date: 20071010
  Serious: Yes (Other)
  Sender: FDA-Public Use
  Company Number: FR-GENENTECH-238432

PATIENT
  Sex: Male

DRUGS (3)
  1. RANIBIZUMAB [Suspect]
     Indication: MACULAR DEGENERATION
     Dosage: 0.05 ML, UNK
     Route: 031
     Dates: start: 20070302
  2. VALACYCLOVIR HCL [Concomitant]
     Indication: KERATITIS HERPETIC
     Dosage: 500 MG, BID
  3. VALACYCLOVIR HCL [Concomitant]
     Dosage: 1000 MG, TID

REACTIONS (1)
  - HERPES SIMPLEX OPHTHALMIC [None]
